FAERS Safety Report 26147074 (Version 1)
Quarter: 2025Q4

REPORT INFORMATION
  Report Type: Report from Study
  Country: US (occurrence: US)
  Receive Date: 20251211
  Receipt Date: 20251211
  Transmission Date: 20260118
  Serious: Yes (Death, Hospitalization, Other)
  Sender: JOHNSON AND JOHNSON
  Company Number: US-JNJFOC-20250601705

PATIENT

DRUGS (5)
  1. OPSUMIT [Suspect]
     Active Substance: MACITENTAN
     Indication: Pulmonary arterial hypertension
     Route: 048
  2. AMBRISENTAN [Concomitant]
     Active Substance: AMBRISENTAN
     Indication: Product used for unknown indication
  3. SILDENAFIL [Concomitant]
     Active Substance: SILDENAFIL
     Indication: Product used for unknown indication
  4. TADALAFIL [Concomitant]
     Active Substance: TADALAFIL
     Indication: Product used for unknown indication
  5. BOSENTAN [Concomitant]
     Active Substance: BOSENTAN
     Indication: Product used for unknown indication

REACTIONS (34)
  - Death [Fatal]
  - Hospitalisation [Unknown]
  - Pneumonia [Unknown]
  - Respiratory failure [Unknown]
  - Cardiac failure [Unknown]
  - Acute kidney injury [Unknown]
  - Cardiac arrest [Unknown]
  - Renal failure [Unknown]
  - Atrial fibrillation [Unknown]
  - Hypoxia [Unknown]
  - Gastrointestinal haemorrhage [Unknown]
  - Right ventricular failure [Unknown]
  - Cardiac failure congestive [Unknown]
  - Pulmonary hypertension [Unknown]
  - Acute respiratory failure [Unknown]
  - Dyspnoea [Unknown]
  - Condition aggravated [Unknown]
  - Cough [Unknown]
  - Hypervolaemia [Unknown]
  - Chest pain [Unknown]
  - Anaemia [Unknown]
  - Liver disorder [Unknown]
  - Headache [Unknown]
  - Nausea [Unknown]
  - Oedema peripheral [Unknown]
  - Diarrhoea [Unknown]
  - Peripheral swelling [Unknown]
  - Oedema [Unknown]
  - Bronchitis [Unknown]
  - Cellulitis [Unknown]
  - Dizziness [Unknown]
  - Pyrexia [Unknown]
  - Transfusion [Unknown]
  - Abdominal pain [Unknown]
